FAERS Safety Report 19836249 (Version 2)
Quarter: 2021Q3

REPORT INFORMATION
  Report Type: Spontaneous
  Country: US (occurrence: US)
  Receive Date: 20210916
  Receipt Date: 20210922
  Transmission Date: 20211014
  Serious: Yes (Hospitalization, Other)
  Sender: FDA-Public Use
  Company Number: US-AUROBINDO-AUR-APL-2021-038751

PATIENT
  Age: 70 Year
  Sex: Male

DRUGS (2)
  1. METHOTREXATE. [Suspect]
     Active Substance: METHOTREXATE
     Indication: RHEUMATOID ARTHRITIS
     Dosage: 10 MILLIGRAM, EVERY WEEK
     Route: 058
  2. TRIMETHOPRIM+SULFAMETHOXAZOLE [Suspect]
     Active Substance: SULFAMETHOXAZOLE\TRIMETHOPRIM
     Indication: CELLULITIS
     Dosage: UNK
     Route: 065

REACTIONS (13)
  - Rash erythematous [Unknown]
  - Mouth haemorrhage [Unknown]
  - Thrombocytopenia [Recovered/Resolved]
  - Anaemia [Recovered/Resolved]
  - Febrile neutropenia [Recovering/Resolving]
  - Skin erosion [Unknown]
  - Epistaxis [Unknown]
  - Myelosuppression [Recovered/Resolved]
  - Stomatitis [Unknown]
  - Toxicity to various agents [Unknown]
  - Eosinophilia [Recovered/Resolved]
  - Pancytopenia [Recovered/Resolved]
  - Skin lesion [Unknown]
